FAERS Safety Report 9204892 (Version 1)
Quarter: 2013Q1

REPORT INFORMATION
  Report Type: Spontaneous
  Country: US (occurrence: None)
  Receive Date: 20120709
  Receipt Date: 20120709
  Transmission Date: 20140127
  Serious: Yes (Other)
  Sender: FDA-Public Use
  Company Number: PHEH2011US04378

PATIENT
  Age: 87 Year
  Sex: Female

DRUGS (2)
  1. GLEEVEC [Suspect]
     Route: 048
     Dates: start: 20110818
  2. VITAMIN B12 (CYANOCOBALMIN) [Concomitant]

REACTIONS (1)
  - Anaemia [None]
